FAERS Safety Report 5664300-X (Version None)
Quarter: 2008Q1

REPORT INFORMATION
  Report Type: 
  Country: None (occurrence: None)
  Receive Date: 20080311
  Receipt Date: 20080311
  Transmission Date: 20080703
  Serious: Yes (Death)
  Sender: FDA-Public Use
  Company Number: None

PATIENT
  Age: 57 Year
  Sex: Female
  Weight: 84.1 kg

DRUGS (2)
  1. PROPOFOL [Suspect]
     Indication: BRONCHOSCOPY
     Dosage: 60 MG ONCE IV  : 40 MG ONCE IV
     Route: 042
     Dates: start: 20080128, end: 20080128
  2. PROPOFOL [Suspect]
     Indication: SEDATIVE THERAPY
     Dosage: 60 MG ONCE IV  : 40 MG ONCE IV
     Route: 042
     Dates: start: 20080128, end: 20080128

REACTIONS (6)
  - ATRIOVENTRICULAR BLOCK [None]
  - BRADYCARDIA [None]
  - CARDIO-RESPIRATORY ARREST [None]
  - ELECTROMECHANICAL DISSOCIATION [None]
  - POST PROCEDURAL COMPLICATION [None]
  - SUPRAVENTRICULAR TACHYCARDIA [None]
